FAERS Safety Report 12099928 (Version 1)
Quarter: 2016Q1

REPORT INFORMATION
  Report Type: Spontaneous
  Country: US (occurrence: None)
  Receive Date: 20160219
  Receipt Date: 20160219
  Transmission Date: 20160526
  Serious: Yes (Other)
  Sender: FDA-Public Use
  Company Number: None

PATIENT
  Age: 70 Year
  Sex: Female
  Weight: 58.97 kg

DRUGS (1)
  1. CIPROFLOXACIN. [Suspect]
     Active Substance: CIPROFLOXACIN
     Indication: URINARY TRACT INFECTION
     Dosage: 14 DW DS 7
     Route: 048
     Dates: start: 20150506, end: 20150512

REACTIONS (7)
  - Paraesthesia [None]
  - Hypoaesthesia [None]
  - Pain [None]
  - Muscle spasms [None]
  - Ligament sprain [None]
  - Pain in extremity [None]
  - Sensory loss [None]

NARRATIVE: CASE EVENT DATE: 20150506
